FAERS Safety Report 11622605 (Version 1)
Quarter: 2015Q4

REPORT INFORMATION
  Report Type: Spontaneous
  Country: US (occurrence: None)
  Receive Date: 20151009
  Receipt Date: 20151009
  Transmission Date: 20160304
  Serious: No
  Sender: FDA-Public Use
  Company Number: None

PATIENT
  Age: 46 Year
  Sex: Female

DRUGS (1)
  1. QUINACRINE [Suspect]
     Active Substance: QUINACRINE
     Indication: SYSTEMIC LUPUS ERYTHEMATOSUS
     Dates: start: 20140527, end: 20140619

REACTIONS (2)
  - Cholestasis [None]
  - Drug-induced liver injury [None]

NARRATIVE: CASE EVENT DATE: 20140626
